FAERS Safety Report 9241110 (Version 1)
Quarter: 2013Q1

REPORT INFORMATION
  Report Type: Spontaneous
  Country: US (occurrence: None)
  Receive Date: 20121120
  Receipt Date: 20121120
  Transmission Date: 20140127
  Serious: No
  Sender: FDA-Public Use
  Company Number: 1000039140

PATIENT
  Age: 87 Year
  Sex: Male

DRUGS (2)
  1. VIIBRYD [Suspect]
     Indication: DEPRESSION
     Route: 048
     Dates: start: 20120906, end: 20120912
  2. MIRTAZAPINE [Suspect]
     Indication: DEPRESSION
     Dates: start: 20120906

REACTIONS (5)
  - Insomnia [None]
  - Hallucination [None]
  - Oedema peripheral [None]
  - Aggression [None]
  - Irritability [None]
